FAERS Safety Report 6062921-6 (Version None)
Quarter: 2009Q1

REPORT INFORMATION
  Report Type: 
  Country: None (occurrence: None)
  Receive Date: 20090129
  Receipt Date: 20090121
  Transmission Date: 20090719
  Serious: Yes (Other)
  Sender: FDA-Public Use
  Company Number: 2009SP001564

PATIENT
  Age: 15 Year
  Sex: Female

DRUGS (2)
  1. DESLORATADINE [Suspect]
     Indication: SEASONAL ALLERGY
     Dosage: 5 MG; PO
     Route: 048
     Dates: start: 20070401, end: 20081101
  2. SYMBICORT [Concomitant]

REACTIONS (1)
  - HICCUPS [None]
